FAERS Safety Report 15932521 (Version 1)
Quarter: 2019Q1

REPORT INFORMATION
  Report Type: Spontaneous
  Country: US (occurrence: US)
  Receive Date: 20190117
  Receipt Date: 20190117
  Transmission Date: 20190417
  Serious: Yes (Disabling, Other)
  Sender: FDA-Public Use
  Company Number: None

PATIENT
  Age: 67 Year
  Sex: Female
  Weight: 61.69 kg

DRUGS (3)
  1. MULTI VITAMIN [Concomitant]
     Active Substance: VITAMINS
     Route: 048
     Dates: start: 19140101, end: 19170101
  2. LOSARTAN W POTASSIUM [Suspect]
     Active Substance: LOSARTAN
     Indication: BLOOD PRESSURE MEASUREMENT
     Dosage: ?          QUANTITY:50 MG MILLIGRAM(S);OTHER FREQUENCY:AM;?
     Route: 048
     Dates: start: 20140101, end: 20170101
  3. LISINOPRIL. [Concomitant]
     Active Substance: LISINOPRIL

REACTIONS (5)
  - Dizziness [None]
  - Decreased activity [None]
  - Diarrhoea [None]
  - Posture abnormal [None]
  - Nausea [None]

NARRATIVE: CASE EVENT DATE: 20140101
